FAERS Safety Report 10693531 (Version 2)
Quarter: 2015Q1

REPORT INFORMATION
  Report Type: Other
  Country: US (occurrence: US)
  Receive Date: 20150106
  Receipt Date: 20150317
  Transmission Date: 20150721
  Serious: Yes (Death)
  Sender: FDA-Public Use
  Company Number: US-ACORDA-ACO_107985_2014

PATIENT
  Sex: Female

DRUGS (1)
  1. AMPYRA [Suspect]
     Active Substance: DALFAMPRIDINE
     Indication: PRODUCT USED FOR UNKNOWN INDICATION
     Dosage: 10 MG, Q 12 HRS
     Route: 048
     Dates: start: 201408, end: 201412

REACTIONS (1)
  - Death [Fatal]
